FAERS Safety Report 5127328-4 (Version None)
Quarter: 2006Q4

REPORT INFORMATION
  Report Type: 
  Country: None (occurrence: None)
  Receive Date: 20061010
  Receipt Date: 20060926
  Transmission Date: 20070319
  Serious: Yes (Other)
  Sender: FDA-Public Use
  Company Number: 153-20785-06091056

PATIENT

DRUGS (1)
  1. THALOMID [Suspect]
     Indication: HEPATIC NEOPLASM MALIGNANT
     Dosage: 100-400 MG, ORAL
     Route: 048

REACTIONS (7)
  - CONSTIPATION [None]
  - DYSPNOEA [None]
  - HYPERSENSITIVITY [None]
  - OESOPHAGEAL VARICES HAEMORRHAGE [None]
  - PERIORBITAL OEDEMA [None]
  - SICK SINUS SYNDROME [None]
  - TRANSAMINASES INCREASED [None]
